FAERS Safety Report 8906240 (Version 1)
Quarter: 2012Q4

REPORT INFORMATION
  Report Type: Spontaneous
  Country: US (occurrence: None)
  Receive Date: 20121108
  Receipt Date: 20121108
  Transmission Date: 20130627
  Serious: Yes (Other)
  Sender: FDA-Public Use
  Company Number: US-1194967

PATIENT
  Age: 73 Year
  Sex: Male

DRUGS (1)
  1. TRAVATAN Z [Suspect]
     Route: 047

REACTIONS (4)
  - Atrial fibrillation [None]
  - Eye pain [None]
  - Photophobia [None]
  - Vision blurred [None]
